FAERS Safety Report 14474207 (Version 3)
Quarter: 2018Q3

REPORT INFORMATION
  Report Type: Spontaneous
  Country: US (occurrence: US)
  Receive Date: 20180201
  Receipt Date: 20180709
  Transmission Date: 20181010
  Serious: No
  Sender: FDA-Public Use
  Company Number: US-PFIZER INC-2017476887

PATIENT
  Age: 41 Year
  Sex: Female

DRUGS (15)
  1. DOCETAXEL. [Suspect]
     Active Substance: DOCETAXEL
     Indication: BREAST CANCER FEMALE
     Dosage: 93 MG CYCLIC, EVERY 3 WEEKS (06 CYCLES)
     Dates: start: 20140203, end: 20140520
  2. PROTONIX [Concomitant]
     Active Substance: PANTOPRAZOLE SODIUM
     Dosage: UNK
  3. SYNTHROID [Concomitant]
     Active Substance: LEVOTHYROXINE SODIUM
     Dosage: UNK
     Dates: start: 1998
  4. AMBIEN [Concomitant]
     Active Substance: ZOLPIDEM TARTRATE
     Dosage: UNK
  5. CLARITIN [Concomitant]
     Active Substance: LORATADINE
     Dosage: UNK
  6. HERCEPTIN [Concomitant]
     Active Substance: TRASTUZUMAB
     Indication: CHEMOTHERAPY
     Dosage: UNK, WEEKLY
  7. PROCHLORPERAZINE MALEATE. [Concomitant]
     Active Substance: PROCHLORPERAZINE MALEATE
     Dosage: UNK
  8. PARAPLATIN [Concomitant]
     Active Substance: CARBOPLATIN
     Indication: CHEMOTHERAPY
     Dosage: UNK, EVERY 3 WEEKS
  9. FLONASE [Concomitant]
     Active Substance: FLUTICASONE PROPIONATE
     Dosage: UNK
  10. ONDANSETRON [Concomitant]
     Active Substance: ONDANSETRON
     Dosage: UNK
  11. ULTRAM [Concomitant]
     Active Substance: TRAMADOL HYDROCHLORIDE
     Dosage: UNK
  12. ZOLOFT [Concomitant]
     Active Substance: SERTRALINE HYDROCHLORIDE
     Dosage: UNK
     Dates: start: 1998
  13. TAXOTERE [Suspect]
     Active Substance: DOCETAXEL
     Indication: BREAST CANCER FEMALE
     Dosage: 93 MG CYCLIC, EVERY 3 WEEKS (06 CYCLES)
     Dates: start: 20140203, end: 20140520
  14. LIDOCAINE/PRILOCAINE [Concomitant]
     Dosage: UNK
  15. PSEUDOEPHEDRINE HCL [Concomitant]
     Active Substance: PSEUDOEPHEDRINE HYDROCHLORIDE
     Dosage: UNK

REACTIONS (5)
  - Alopecia [Not Recovered/Not Resolved]
  - Hair disorder [Not Recovered/Not Resolved]
  - Hair texture abnormal [Not Recovered/Not Resolved]
  - Madarosis [Not Recovered/Not Resolved]
  - Hair colour changes [Not Recovered/Not Resolved]

NARRATIVE: CASE EVENT DATE: 201403
